FAERS Safety Report 4492387-9 (Version None)
Quarter: 2004Q4

REPORT INFORMATION
  Report Type: 
  Country: None (occurrence: None)
  Receive Date: 20041101
  Receipt Date: 20041101
  Transmission Date: 20050328
  Serious: No
  Sender: FDA-Public Use
  Company Number: None

PATIENT
  Age: 69 Year
  Sex: Female
  Weight: 56.6996 kg

DRUGS (1)
  1. KEFLEX [Suspect]
     Indication: LOCALISED INFECTION
     Dosage: 250 MG ORAL Q 6 HRS
     Route: 048
     Dates: start: 20041105, end: 20041115

REACTIONS (1)
  - ARTHRALGIA [None]
